FAERS Safety Report 9229127 (Version 1)
Quarter: 2013Q2

REPORT INFORMATION
  Report Type: Spontaneous
  Country: US (occurrence: US)
  Receive Date: 20130412
  Receipt Date: 20130412
  Transmission Date: 20140414
  Serious: Yes (Death, Other)
  Sender: FDA-Public Use
  Company Number: US-ASTRAZENECA-2013SE22948

PATIENT
  Age: 59 Year
  Sex: Female

DRUGS (3)
  1. NEXIUM [Suspect]
     Indication: GASTROOESOPHAGEAL REFLUX DISEASE
     Route: 048
  2. CHEMOTHERAPY [Concomitant]
  3. RADIATION [Concomitant]

REACTIONS (3)
  - Oesophageal carcinoma [Fatal]
  - Cachexia [Fatal]
  - Myocardial infarction [Unknown]
